FAERS Safety Report 23758376 (Version 6)
Quarter: 2025Q3

REPORT INFORMATION
  Report Type: Spontaneous
  Country: CA (occurrence: CA)
  Receive Date: 20240418
  Receipt Date: 20250711
  Transmission Date: 20251021
  Serious: Yes (Life-Threatening, Other)
  Sender: BAUSCH AND LOMB
  Company Number: CA-BAUSCH-BL-2024-006095

PATIENT
  Age: 14 Year
  Sex: Male
  Weight: 41 kg

DRUGS (78)
  1. BUDESONIDE [Suspect]
     Active Substance: BUDESONIDE
     Indication: Product used for unknown indication
     Route: 065
  2. FAMOTIDINE [Suspect]
     Active Substance: FAMOTIDINE
     Indication: Product used for unknown indication
     Route: 065
  3. FAMOTIDINE [Suspect]
     Active Substance: FAMOTIDINE
     Route: 065
  4. ACETAMINOPHEN [Suspect]
     Active Substance: ACETAMINOPHEN
     Indication: Product used for unknown indication
     Route: 065
  5. ALBUREX [Suspect]
     Active Substance: ALBUMIN HUMAN
     Indication: Product used for unknown indication
     Route: 042
  6. ALBUREX [Suspect]
     Active Substance: ALBUMIN HUMAN
     Route: 042
  7. ALBUREX [Suspect]
     Active Substance: ALBUMIN HUMAN
     Route: 065
  8. ALBUREX [Suspect]
     Active Substance: ALBUMIN HUMAN
     Route: 042
  9. ALBUREX [Suspect]
     Active Substance: ALBUMIN HUMAN
     Route: 065
  10. BENADRYL [Suspect]
     Active Substance: DIPHENHYDRAMINE HYDROCHLORIDE
     Indication: Product used for unknown indication
     Route: 065
  11. CALCIUM CHLORIDE [Suspect]
     Active Substance: CALCIUM CHLORIDE
     Indication: Product used for unknown indication
     Route: 042
  12. CALCIUM CHLORIDE [Suspect]
     Active Substance: CALCIUM CHLORIDE
     Route: 065
  13. CEFAZOLIN SODIUM [Suspect]
     Active Substance: CEFAZOLIN SODIUM
     Indication: Product used for unknown indication
     Route: 042
  14. CEFAZOLIN SODIUM [Suspect]
     Active Substance: CEFAZOLIN SODIUM
     Route: 042
  15. CEFAZOLIN SODIUM [Suspect]
     Active Substance: CEFAZOLIN SODIUM
     Route: 065
  16. CHLORHEXIDINE GLUCONATE [Suspect]
     Active Substance: CHLORHEXIDINE GLUCONATE
     Indication: Product used for unknown indication
     Route: 065
  17. DDAVP [Suspect]
     Active Substance: DESMOPRESSIN ACETATE
     Indication: Product used for unknown indication
     Route: 042
  18. DDAVP [Suspect]
     Active Substance: DESMOPRESSIN ACETATE
     Route: 065
  19. DDAVP [Suspect]
     Active Substance: DESMOPRESSIN ACETATE
     Route: 042
     Dates: start: 20231124, end: 20231124
  20. DECADRON [Suspect]
     Active Substance: DEXAMETHASONE
     Indication: Product used for unknown indication
     Route: 065
  21. HUMAN COAGULATION FACTOR VIII/VON WILLEBRAND FACTOR COMPLEX [Suspect]
     Active Substance: HUMAN COAGULATION FACTOR VIII/VON WILLEBRAND FACTOR COMPLEX
     Indication: Product used for unknown indication
     Route: 065
  22. GABAPENTIN [Suspect]
     Active Substance: GABAPENTIN
     Indication: Product used for unknown indication
     Route: 065
  23. DEVICE\GELATIN [Suspect]
     Active Substance: DEVICE\GELATIN
     Indication: Tissue sealing
     Route: 065
  24. DEVICE\GELATIN [Suspect]
     Active Substance: DEVICE\GELATIN
     Route: 065
  25. DEVICE\GELATIN [Suspect]
     Active Substance: DEVICE\GELATIN
     Route: 065
  26. HYDROMORPHONE [Suspect]
     Active Substance: HYDROMORPHONE
     Indication: Product used for unknown indication
     Route: 065
  27. KETAMINE [Suspect]
     Active Substance: KETAMINE
     Indication: Scoliosis surgery
     Route: 065
  28. KETAMINE [Suspect]
     Active Substance: KETAMINE
     Route: 065
     Dates: start: 20231124
  29. KETAMINE [Suspect]
     Active Substance: KETAMINE
     Route: 065
  30. MORPHINE [Suspect]
     Active Substance: MORPHINE
     Indication: Product used for unknown indication
     Route: 008
  31. MORPHINE [Suspect]
     Active Substance: MORPHINE
     Route: 065
  32. NAPROSYN [Suspect]
     Active Substance: NAPROXEN
     Indication: Product used for unknown indication
     Route: 065
  33. NOREPINEPHRINE BITARTRATE [Suspect]
     Active Substance: NOREPINEPHRINE BITARTRATE
     Indication: Product used for unknown indication
     Route: 065
  34. NOREPINEPHRINE BITARTRATE [Suspect]
     Active Substance: NOREPINEPHRINE BITARTRATE
     Route: 065
  35. ONDANSETRON HYDROCHLORIDE [Suspect]
     Active Substance: ONDANSETRON HYDROCHLORIDE
     Indication: Product used for unknown indication
     Route: 065
  36. PROPOFOL [Suspect]
     Active Substance: PROPOFOL
     Indication: Scoliosis surgery
     Route: 065
  37. PROPOFOL [Suspect]
     Active Substance: PROPOFOL
     Route: 065
  38. ROCURONIUM [Suspect]
     Active Substance: ROCURONIUM BROMIDE
     Indication: Scoliosis surgery
     Route: 065
  39. ROCURONIUM [Suspect]
     Active Substance: ROCURONIUM BROMIDE
     Route: 042
  40. SOLU-CORTEF [Suspect]
     Active Substance: HYDROCORTISONE SODIUM SUCCINATE
     Indication: Product used for unknown indication
     Route: 065
  41. SUFENTANIL [Suspect]
     Active Substance: SUFENTANIL
     Indication: Product used for unknown indication
     Route: 065
  42. TISSEEL FROZEN [Suspect]
     Active Substance: FIBRINOGEN HUMAN\HUMAN THROMBIN
     Indication: Tissue sealing
     Route: 065
  43. TISSEEL FROZEN [Suspect]
     Active Substance: FIBRINOGEN HUMAN\HUMAN THROMBIN
     Route: 065
  44. TRANDATE [Suspect]
     Active Substance: LABETALOL HYDROCHLORIDE
     Indication: Product used for unknown indication
     Route: 065
  45. TRANDATE [Suspect]
     Active Substance: LABETALOL HYDROCHLORIDE
     Route: 042
  46. TRANEXAMIC ACID [Suspect]
     Active Substance: TRANEXAMIC ACID
     Indication: Product used for unknown indication
     Route: 065
  47. TRANEXAMIC ACID [Suspect]
     Active Substance: TRANEXAMIC ACID
     Route: 042
  48. TRANEXAMIC ACID [Suspect]
     Active Substance: TRANEXAMIC ACID
     Route: 042
  49. TRANEXAMIC ACID [Suspect]
     Active Substance: TRANEXAMIC ACID
     Route: 065
     Dates: start: 20231124
  50. VANCOMYCIN HYDROCHLORIDE [Suspect]
     Active Substance: VANCOMYCIN HYDROCHLORIDE
     Indication: Product used for unknown indication
     Route: 065
  51. VANCOMYCIN HYDROCHLORIDE [Suspect]
     Active Substance: VANCOMYCIN HYDROCHLORIDE
     Route: 042
  52. VENTOLIN [Suspect]
     Active Substance: ALBUTEROL SULFATE
     Indication: Product used for unknown indication
     Route: 065
  53. HYDROCORTISONE SODIUM SUCCINATE [Suspect]
     Active Substance: HYDROCORTISONE SODIUM SUCCINATE
     Indication: Product used for unknown indication
     Route: 030
  54. HYDROCORTISONE SODIUM SUCCINATE [Suspect]
     Active Substance: HYDROCORTISONE SODIUM SUCCINATE
     Route: 065
  55. ALBUTEIN [Suspect]
     Active Substance: ALBUMIN HUMAN
     Indication: Product used for unknown indication
     Route: 042
  56. ALBUTEIN [Suspect]
     Active Substance: ALBUMIN HUMAN
     Route: 042
  57. ALBUTEIN [Suspect]
     Active Substance: ALBUMIN HUMAN
     Route: 065
  58. ALBUTEIN [Suspect]
     Active Substance: ALBUMIN HUMAN
     Route: 042
  59. ALBUTEIN [Suspect]
     Active Substance: ALBUMIN HUMAN
     Route: 065
  60. ALBUTEIN [Suspect]
     Active Substance: ALBUMIN HUMAN
     Route: 042
  61. ALBUTEIN [Suspect]
     Active Substance: ALBUMIN HUMAN
     Route: 042
  62. ALBUTEIN [Suspect]
     Active Substance: ALBUMIN HUMAN
     Route: 042
  63. ALBUTEIN [Suspect]
     Active Substance: ALBUMIN HUMAN
     Route: 065
  64. ALBUTEIN [Suspect]
     Active Substance: ALBUMIN HUMAN
     Route: 065
  65. APROTININ\CALCIUM CHLORIDE\FIBRINOGEN HUMAN\THROMBIN [Suspect]
     Active Substance: APROTININ\CALCIUM CHLORIDE\FIBRINOGEN HUMAN\HUMAN THROMBIN
     Indication: Tissue sealing
     Route: 065
  66. APROTININ\CALCIUM CHLORIDE\FIBRINOGEN HUMAN\THROMBIN [Suspect]
     Active Substance: APROTININ\CALCIUM CHLORIDE\FIBRINOGEN HUMAN\HUMAN THROMBIN
     Indication: Surgery
     Route: 065
     Dates: start: 20241124, end: 20241124
  67. CHLORHEXIDINE GLUCONATE\ISOPROPYL ALCOHOL [Suspect]
     Active Substance: CHLORHEXIDINE GLUCONATE\ISOPROPYL ALCOHOL
     Indication: Product used for unknown indication
     Route: 065
  68. DEXAMETHASONE ACETATE [Suspect]
     Active Substance: DEXAMETHASONE ACETATE
     Indication: Product used for unknown indication
     Route: 065
  69. DIPHENHYDRAMINE [Suspect]
     Active Substance: DIPHENHYDRAMINE
     Indication: Product used for unknown indication
     Route: 065
  70. KETAMINE HYDROCHLORIDE [Suspect]
     Active Substance: KETAMINE HYDROCHLORIDE
     Indication: Scoliosis surgery
     Route: 065
  71. ONDANSETRON [Suspect]
     Active Substance: ONDANSETRON
     Indication: Product used for unknown indication
     Route: 065
  72. SUFENTANIL CITRATE [Suspect]
     Active Substance: SUFENTANIL CITRATE
     Indication: Product used for unknown indication
     Route: 065
  73. SUFENTANIL CITRATE [Suspect]
     Active Substance: SUFENTANIL CITRATE
     Route: 065
     Dates: start: 20231124
  74. VON WILLEBRAND FACTOR HUMAN [Suspect]
     Active Substance: VON WILLEBRAND FACTOR HUMAN
     Indication: Product used for unknown indication
     Route: 065
  75. VON WILLEBRAND FACTOR HUMAN [Suspect]
     Active Substance: VON WILLEBRAND FACTOR HUMAN
     Route: 065
  76. COAGULATION FACTOR VIIA RECOMBINANT HUMAN-JNCW [Suspect]
     Active Substance: COAGULATION FACTOR VIIA RECOMBINANT HUMAN-JNCW
     Indication: Product used for unknown indication
     Route: 065
  77. FIBRINOGEN [Suspect]
     Active Substance: FIBRINOGEN HUMAN
     Indication: Product used for unknown indication
     Route: 065
  78. FIBRINOGEN [Suspect]
     Active Substance: FIBRINOGEN HUMAN
     Route: 065

REACTIONS (23)
  - Adverse reaction [Recovered/Resolved]
  - Anaphylactic reaction [Recovered/Resolved]
  - Anaphylactic shock [Recovered/Resolved]
  - Angiopathy [Recovered/Resolved]
  - Back pain [Recovered/Resolved]
  - Blood pressure increased [Recovered/Resolved]
  - Emphysema [Recovered/Resolved]
  - Epistaxis [Recovered/Resolved]
  - Face oedema [Recovered/Resolved]
  - Flatulence [Recovered/Resolved]
  - Haemorrhage [Recovered/Resolved]
  - Haemothorax [Recovered/Resolved]
  - Hypersensitivity [Recovered/Resolved]
  - Hypotension [Recovered/Resolved]
  - Hypovolaemia [Recovered/Resolved]
  - Inspiratory capacity decreased [Recovered/Resolved]
  - Mechanical ventilation complication [Recovered/Resolved]
  - Pleural effusion [Recovered/Resolved]
  - Shock haemorrhagic [Recovered/Resolved]
  - Tachycardia [Recovered/Resolved]
  - Urticaria [Recovered/Resolved]
  - Pneumothorax [Recovered/Resolved]
  - Shock [Recovered/Resolved]

NARRATIVE: CASE EVENT DATE: 20231124
